FAERS Safety Report 5150040-2 (Version None)
Quarter: 2006Q4

REPORT INFORMATION
  Report Type: 
  Country: None (occurrence: None)
  Receive Date: 20061113
  Receipt Date: 20061004
  Transmission Date: 20070319
  Serious: Yes (Life-Threatening, Disabling)
  Sender: FDA-Public Use
  Company Number: US-MERCK-0610USA03708

PATIENT
  Age: 49 Year
  Sex: Male

DRUGS (6)
  1. ZETIA [Suspect]
     Indication: BLOOD CHOLESTEROL INCREASED
     Route: 048
     Dates: start: 20060830, end: 20060929
  2. DEPAKOTE [Concomitant]
     Route: 065
  3. TEGRETOL [Concomitant]
     Route: 065
  4. LIPITOR [Concomitant]
     Route: 065
  5. LOTENSIN [Concomitant]
     Route: 065
  6. FLORINEF [Concomitant]
     Route: 065

REACTIONS (2)
  - CONVULSION [None]
  - VASCULITIS CEREBRAL [None]
